FAERS Safety Report 8941599 (Version 2)
Quarter: 2012Q4

REPORT INFORMATION
  Report Type: 
  Country: CL (occurrence: CL)
  Receive Date: 20121203
  Receipt Date: 20121227
  Transmission Date: 20130627
  Serious: Yes (Hospitalization, Other)
  Sender: FDA-Public Use
  Company Number: CL-PFIZER INC-2012300684

PATIENT
  Age: 68 Year
  Sex: Female

DRUGS (1)
  1. CHAMPIX [Suspect]
     Indication: SMOKING CESSATION THERAPY
     Dosage: UNK
     Route: 048
     Dates: start: 20121114, end: 20121120

REACTIONS (7)
  - Acute myocardial infarction [Recovered/Resolved]
  - Pneumonia [Recovered/Resolved]
  - Angina unstable [Unknown]
  - Chronic obstructive pulmonary disease [Recovered/Resolved]
  - Oedema [Recovered/Resolved]
  - Tachycardia [Unknown]
  - Fatigue [Not Recovered/Not Resolved]
